FAERS Safety Report 11868476 (Version 16)
Quarter: 2021Q4

REPORT INFORMATION
  Report Type: Other
  Country: CA (occurrence: CA)
  Receive Date: 20151225
  Receipt Date: 20211006
  Transmission Date: 20220303
  Serious: Yes (Hospitalization, Other)
  Sender: FDA-Public Use
  Company Number: CA-ROCHE-1367564

PATIENT
  Age: 59 Year
  Sex: Female
  Weight: 90.7 kg

DRUGS (18)
  1. RITUXAN [Suspect]
     Active Substance: RITUXIMAB
     Indication: Rheumatoid arthritis
     Dosage: DATE OF MOST RECENT RITUXIMAB INFUSION: 03/MAR/2014?DATE OF MOST RECENT RITUXIMAB INFUSION: 26/FEB/2
     Route: 042
     Dates: start: 20131016
  2. JANUMET [Concomitant]
     Active Substance: METFORMIN HYDROCHLORIDE\SITAGLIPTIN PHOSPHATE
  3. ASPIRIN [Concomitant]
     Active Substance: ASPIRIN
  4. ACETAMINOPHEN [Concomitant]
     Active Substance: ACETAMINOPHEN
     Indication: Premedication
     Route: 048
     Dates: start: 20131016
  5. DIPHENHYDRAMINE HYDROCHLORIDE [Concomitant]
     Active Substance: DIPHENHYDRAMINE HYDROCHLORIDE
     Indication: Premedication
     Dosage: ONGOING  - YES
     Route: 048
     Dates: start: 20131016
  6. METHYLPREDNISOLONE [Concomitant]
     Active Substance: METHYLPREDNISOLONE
     Indication: Premedication
     Route: 042
     Dates: start: 20131016
  7. METHOTREXATE [Concomitant]
     Active Substance: METHOTREXATE
     Route: 048
  8. ENBREL [Concomitant]
     Active Substance: ETANERCEPT
  9. EZETIMIBE [Concomitant]
     Active Substance: EZETIMIBE
     Route: 048
  10. PERINDOPRIL [Concomitant]
     Active Substance: PERINDOPRIL
     Route: 048
  11. CRESTOR [Concomitant]
     Active Substance: ROSUVASTATIN CALCIUM
     Route: 048
  12. TIAZAC (CANADA) [Concomitant]
     Route: 048
  13. IBUPROFEN [Concomitant]
     Active Substance: IBUPROFEN
  14. FOLIC ACID [Concomitant]
     Active Substance: FOLIC ACID
     Route: 048
  15. PREDNISONE [Concomitant]
     Active Substance: PREDNISONE
     Indication: Arthritis
  16. METFORMIN [Concomitant]
     Active Substance: METFORMIN HYDROCHLORIDE
  17. METFORMIN HYDROCHLORIDE [Concomitant]
     Active Substance: METFORMIN HYDROCHLORIDE
     Route: 048
  18. EZETIMIBE [Concomitant]
     Active Substance: EZETIMIBE
     Route: 048

REACTIONS (16)
  - Adenocarcinoma metastatic [Unknown]
  - Intestinal obstruction [Unknown]
  - Rectal cancer [Not Recovered/Not Resolved]
  - Hernia [Not Recovered/Not Resolved]
  - Cataract [Unknown]
  - Abdominal pain lower [Recovered/Resolved]
  - Nausea [Unknown]
  - Weight increased [Unknown]
  - Blood test abnormal [Unknown]
  - Pain [Not Recovered/Not Resolved]
  - Weight decreased [Unknown]
  - Blood pressure diastolic decreased [Unknown]
  - Arthritis [Unknown]
  - Blood pressure increased [Unknown]
  - Arthritis [Unknown]
  - Blood pressure systolic increased [Unknown]

NARRATIVE: CASE EVENT DATE: 20140301
